FAERS Safety Report 5354003-3 (Version None)
Quarter: 2007Q2

REPORT INFORMATION
  Report Type: 
  Country: None (occurrence: None)
  Receive Date: 20070521
  Receipt Date: 20070205
  Transmission Date: 20071010
  Serious: No
  Sender: FDA-Public Use
  Company Number: WAES 0702USA00764

PATIENT
  Age: 61 Year
  Sex: Female

DRUGS (10)
  1. JANUVIA [Suspect]
     Indication: DIABETES MELLITUS
     Dosage: 100 MG/DAILY/PO
     Route: 048
     Dates: start: 20070101
  2. ACTOS [Concomitant]
  3. CARDURA [Concomitant]
  4. GLUCOPHAGE [Concomitant]
  5. NORVASC [Concomitant]
  6. SYNTHROID [Concomitant]
  7. VYTORIN [Concomitant]
  8. ASPIRIN [Concomitant]
  9. HYDROCHLOROTHIAZIDE [Concomitant]
  10. IBUPROFEN [Concomitant]

REACTIONS (3)
  - NASOPHARYNGITIS [None]
  - PHARYNGOLARYNGEAL PAIN [None]
  - RASH [None]
